FAERS Safety Report 4440391-9 (Version None)
Quarter: 2004Q3

REPORT INFORMATION
  Report Type: 
  Country: None (occurrence: None)
  Receive Date: 20040901
  Receipt Date: 20040901
  Transmission Date: 20050211
  Serious: Yes (Hospitalization)
  Sender: FDA-Public Use
  Company Number: None

PATIENT
  Age: 32 Year
  Sex: Male
  Weight: 55.9 kg

DRUGS (6)
  1. VANCOMYCIN [Suspect]
     Indication: GROIN ABSCESS
     Dosage: 1-1.5 GM BID IV
     Route: 042
     Dates: start: 20040810, end: 20040819
  2. VANCOMYCIN [Suspect]
     Indication: SUBCUTANEOUS ABSCESS
     Dosage: 1-1.5 GM BID IV
     Route: 042
     Dates: start: 20040810, end: 20040819
  3. AZITHROMYCIN [Concomitant]
  4. BACTRIM DS [Concomitant]
  5. CEFTAZIDIME [Concomitant]
  6. NYSTATIN [Concomitant]

REACTIONS (2)
  - NEUTROPENIA [None]
  - PYREXIA [None]
